FAERS Safety Report 8792940 (Version 4)
Quarter: 2013Q1

REPORT INFORMATION
  Report Type: Report from Study
  Country: UG (occurrence: UG)
  Receive Date: 20120918
  Receipt Date: 20130325
  Transmission Date: 20140127
  Serious: Yes (Life-Threatening)
  Sender: FDA-Public Use
  Company Number: UG-ABBOTT-12P-165-0980125-00

PATIENT
  Age: 36 Year
  Sex: Female

DRUGS (9)
  1. ALUVIA [Suspect]
     Indication: HIV INFECTION
     Dosage: 400/100MG BID
     Route: 048
     Dates: start: 20110316
  2. ALUVIA [Suspect]
     Indication: MALARIA PROPHYLAXIS
  3. AZT [Concomitant]
     Indication: HIV INFECTION
     Dates: start: 20110316, end: 20120920
  4. AZT [Concomitant]
     Indication: MALARIA PROPHYLAXIS
  5. 3TC [Concomitant]
     Indication: HIV INFECTION
     Dates: start: 20110316
  6. 3TC [Concomitant]
     Indication: MALARIA PROPHYLAXIS
  7. SEPTRIN [Concomitant]
     Indication: PRODUCT USED FOR UNKNOWN INDICATION
     Dates: start: 20110316
  8. MULTIVITAMIN [Concomitant]
     Indication: PRODUCT USED FOR UNKNOWN INDICATION
     Dates: start: 20111114
  9. TENOFOVIR [Concomitant]
     Indication: HIV INFECTION
     Dates: start: 20120920

REACTIONS (1)
  - Neutropenia [Unknown]
